FAERS Safety Report 12280777 (Version 1)
Quarter: 2016Q2

REPORT INFORMATION
  Report Type: Spontaneous
  Country: US (occurrence: None)
  Receive Date: 20160418
  Receipt Date: 20160418
  Transmission Date: 20160815
  Serious: No
  Sender: FDA-Public Use
  Company Number: None

PATIENT
  Age: 59 Year
  Sex: Female
  Weight: 63.5 kg

DRUGS (7)
  1. BIOTIN [Concomitant]
     Active Substance: BIOTIN
  2. ATORVSTATIN CALCIUM [Concomitant]
     Active Substance: ATORVASTATIN CALCIUM
  3. C [Concomitant]
  4. COPAXONE [Suspect]
     Active Substance: GLATIRAMER ACETATE
     Indication: MULTIPLE SCLEROSIS
     Dosage: 30 INJECTION(S) 3 TIMES / WEEK GIVEN INTO/UNDER THE SKIN
     Route: 058
     Dates: start: 20160208, end: 20160308
  5. MULTI VITAMIN [Concomitant]
     Active Substance: VITAMINS
  6. VITAMIN D3 [Concomitant]
     Active Substance: CHOLECALCIFEROL
  7. NICIANAMIDE [Concomitant]

REACTIONS (8)
  - Injection site pain [None]
  - Impaired healing [None]
  - Condition aggravated [None]
  - Urticaria [None]
  - Allergy to metals [None]
  - Injection site bruising [None]
  - Multiple sclerosis [None]
  - Therapy change [None]

NARRATIVE: CASE EVENT DATE: 20160309
